FAERS Safety Report 4830922-9 (Version None)
Quarter: 2005Q4

REPORT INFORMATION
  Report Type: 
  Country: None (occurrence: None)
  Receive Date: 20051114
  Receipt Date: 20051027
  Transmission Date: 20060501
  Serious: Yes (Other)
  Sender: FDA-Public Use
  Company Number: 2005-0008905

PATIENT
  Age: 29 Year
  Sex: Male

DRUGS (4)
  1. VIREAD [Suspect]
     Indication: HIV INFECTION
     Dosage: 300 MG, 1 IN 1 D, ORAL
     Route: 048
     Dates: start: 20040706, end: 20040722
  2. NOVIR (RITONAVIR) [Suspect]
     Indication: HIV INFECTION
     Dosage: 100 MG, 1 IN 1 D, ORAL
     Route: 048
     Dates: start: 20040706, end: 20040722
  3. REYATAZ [Suspect]
     Dates: start: 20040706, end: 20040722
  4. BAKTAR  (BACTRIM/00086101/) [Concomitant]

REACTIONS (1)
  - HEPATITIS [None]
